FAERS Safety Report 7468213-2 (Version None)
Quarter: 2011Q2

REPORT INFORMATION
  Report Type: 
  Country: None (occurrence: None)
  Receive Date: 20110509
  Receipt Date: 20110429
  Transmission Date: 20111010
  Serious: Yes (Hospitalization, Other)
  Sender: FDA-Public Use
  Company Number: US-EISAI INC-E2020-04161-SPO-US

PATIENT
  Sex: Female
  Weight: 63.3 kg

DRUGS (9)
  1. VITAMIN E [Concomitant]
  2. LOVAZA [Concomitant]
  3. CALCIUM [Concomitant]
     Route: 048
     Dates: start: 20020101
  4. VITAMIN B COMPLEX CAP [Concomitant]
  5. ATORVASTATIN [Concomitant]
  6. ZOLOFT [Concomitant]
  7. NAMENDA [Concomitant]
  8. ARICEPT [Suspect]
     Indication: DEMENTIA ALZHEIMER'S TYPE
     Route: 048
     Dates: start: 20040101
  9. VITAMIN C [Concomitant]
     Route: 048

REACTIONS (1)
  - PRESYNCOPE [None]
